FAERS Safety Report 8046389-6 (Version None)
Quarter: 2012Q1

REPORT INFORMATION
  Report Type: 
  Country: None (occurrence: None)
  Receive Date: 20120113
  Receipt Date: 20120110
  Transmission Date: 20120608
  Serious: Yes (Other)
  Sender: FDA-Public Use
  Company Number: DK-PFIZER INC-2012010087

PATIENT
  Age: 65 Year
  Sex: Female

DRUGS (1)
  1. VARENICLINE TARTRATE [Suspect]
     Dosage: UNK
     Dates: start: 20070101

REACTIONS (3)
  - HALLUCINATION [None]
  - CARDIAC DISORDER [None]
  - SUICIDAL IDEATION [None]
